FAERS Safety Report 18864485 (Version 3)
Quarter: 2021Q1

REPORT INFORMATION
  Report Type: Report from Study
  Country: CO (occurrence: CO)
  Receive Date: 20210209
  Receipt Date: 20210215
  Transmission Date: 20210420
  Serious: Yes (Life-Threatening, Other)
  Sender: FDA-Public Use
  Company Number: CO-TAKEDA-CO202018003

PATIENT
  Age: 47 Year
  Sex: Female
  Weight: 70 kg

DRUGS (10)
  1. ICATIBANT [Suspect]
     Active Substance: ICATIBANT ACETATE
     Dosage: 30 MILLIGRAM,EVERY 6 HOURS, MAXIMUM 3 SYRINGE IN 24 HOURS
     Route: 058
     Dates: start: 20200529
  2. ICATIBANT [Suspect]
     Active Substance: ICATIBANT ACETATE
     Dosage: 30 MILLIGRAM,EVERY 6 HOURS, MAXIMUM 3 SYRINGE IN 24 HOURS
     Route: 058
     Dates: start: 20200627
  3. ICATIBANT [Suspect]
     Active Substance: ICATIBANT ACETATE
     Indication: HEREDITARY ANGIOEDEMA
     Dosage: 30MG/3ML
     Route: 058
     Dates: start: 20200520
  4. ICATIBANT [Suspect]
     Active Substance: ICATIBANT ACETATE
     Dosage: 30 MILLIGRAM, AS REQ^D
     Route: 058
     Dates: start: 20200713
  5. ICATIBANT [Suspect]
     Active Substance: ICATIBANT ACETATE
     Dosage: 30MG/3ML
     Route: 058
     Dates: start: 20200529
  6. ICATIBANT [Suspect]
     Active Substance: ICATIBANT ACETATE
     Dosage: 30 MILLIGRAM, AS REQ^D
     Route: 058
     Dates: start: 20200713
  7. ICATIBANT [Suspect]
     Active Substance: ICATIBANT ACETATE
     Dosage: 30 MILLIGRAM,EVERY 6 HOURS, MAXIMUM 3 SYRINGE IN 24 HOURS
     Route: 058
     Dates: start: 20200529
  8. ICATIBANT [Suspect]
     Active Substance: ICATIBANT ACETATE
     Indication: HEREDITARY ANGIOEDEMA
     Dosage: 30MG/3ML
     Route: 058
     Dates: start: 20200520
  9. ICATIBANT [Suspect]
     Active Substance: ICATIBANT ACETATE
     Dosage: 30MG/3ML
     Route: 058
     Dates: start: 20200529
  10. ICATIBANT [Suspect]
     Active Substance: ICATIBANT ACETATE
     Dosage: 30 MILLIGRAM,EVERY 6 HOURS, MAXIMUM 3 SYRINGE IN 24 HOURS
     Route: 058
     Dates: start: 20200627

REACTIONS (4)
  - Tooth extraction [Recovered/Resolved]
  - Erythema [Recovering/Resolving]
  - Hereditary angioedema [Recovering/Resolving]
  - Dyspnoea [Recovered/Resolved]

NARRATIVE: CASE EVENT DATE: 20201217
